FAERS Safety Report 15982212 (Version 1)
Quarter: 2019Q1

REPORT INFORMATION
  Report Type: Report from Study
  Country: PT (occurrence: PT)
  Receive Date: 20190219
  Receipt Date: 20190219
  Transmission Date: 20190418
  Serious: Yes (Other)
  Sender: FDA-Public Use
  Company Number: PT-JNJFOC-20190138526

PATIENT
  Sex: Male

DRUGS (1)
  1. DARATUMUMAB [Suspect]
     Active Substance: DARATUMUMAB
     Indication: PLASMA CELL MYELOMA
     Route: 042
     Dates: start: 201611

REACTIONS (6)
  - Respiratory tract infection [Unknown]
  - Cholecystitis acute [Unknown]
  - Dyspnoea [Unknown]
  - Bone pain [Unknown]
  - Asthenia [Unknown]
  - Infusion related reaction [Unknown]
